FAERS Safety Report 7522062-5 (Version None)
Quarter: 2011Q2

REPORT INFORMATION
  Report Type: 
  Country: None (occurrence: None)
  Receive Date: 20110603
  Receipt Date: 20110527
  Transmission Date: 20111010
  Serious: Yes (Other)
  Sender: FDA-Public Use
  Company Number: US-JNJFOC-20110201182

PATIENT
  Sex: Male

DRUGS (10)
  1. PREDNISONE [Suspect]
     Indication: OTITIS MEDIA ACUTE
     Route: 065
  2. PREDNISONE [Suspect]
     Indication: SINUSITIS
     Route: 065
  3. LEVAQUIN [Suspect]
     Indication: OTITIS MEDIA ACUTE
     Route: 048
     Dates: start: 19990501
  4. LEVAQUIN [Suspect]
     Indication: SINUSITIS
     Route: 048
     Dates: start: 19990501
  5. LEVAQUIN [Suspect]
     Indication: RENAL COLIC
     Route: 042
     Dates: start: 20071208
  6. AVELOX [Suspect]
     Indication: SINUSITIS
     Route: 065
     Dates: start: 20020501
  7. CIPROFLOXACIN [Suspect]
     Indication: PRODUCT USED FOR UNKNOWN INDICATION
     Route: 048
  8. METHYLPREDNISOLONE [Suspect]
     Indication: PRODUCT USED FOR UNKNOWN INDICATION
     Route: 048
  9. LEVAQUIN [Suspect]
     Indication: BRONCHITIS
     Route: 048
     Dates: start: 19990501
  10. PREDNISONE [Suspect]
     Indication: BRONCHITIS
     Route: 065

REACTIONS (4)
  - LIGAMENT LAXITY [None]
  - TENDON RUPTURE [None]
  - LIGAMENT RUPTURE [None]
  - JOINT INSTABILITY [None]
